FAERS Safety Report 19625493 (Version 1)
Quarter: 2021Q3

REPORT INFORMATION
  Report Type: Spontaneous
  Country: US (occurrence: US)
  Receive Date: 20210729
  Receipt Date: 20210729
  Transmission Date: 20211014
  Serious: Yes (Hospitalization)
  Sender: FDA-Public Use
  Company Number: US-NOVOPROD-832747

PATIENT
  Age: 58 Year
  Sex: Female
  Weight: 108.84 kg

DRUGS (1)
  1. OZEMPIC [Suspect]
     Active Substance: SEMAGLUTIDE
     Indication: TYPE 2 DIABETES MELLITUS
     Dosage: 1 MG, QW
     Route: 058
     Dates: start: 2020, end: 2020

REACTIONS (3)
  - Pancreatitis [Recovered/Resolved]
  - Weight decreased [Unknown]
  - Seizure [Recovered/Resolved]

NARRATIVE: CASE EVENT DATE: 2020
